FAERS Safety Report 9563567 (Version 1)
Quarter: 2013Q3

REPORT INFORMATION
  Report Type: Spontaneous
  Country: US (occurrence: None)
  Receive Date: 20130926
  Receipt Date: 20130926
  Transmission Date: 20140515
  Serious: Yes (Hospitalization)
  Sender: FDA-Public Use
  Company Number: None

PATIENT
  Age: 71 Year
  Sex: Female
  Weight: 77 kg

DRUGS (2)
  1. CISPLATIN [Suspect]
     Dates: end: 20130826
  2. DOCETAXEL (TAXOTERE) [Suspect]

REACTIONS (6)
  - Nausea [None]
  - Vomiting [None]
  - Dehydration [None]
  - Fall [None]
  - Asthenia [None]
  - Pneumonia [None]
